FAERS Safety Report 19445403 (Version 3)
Quarter: 2021Q3

REPORT INFORMATION
  Report Type: Report from Study
  Country: None (occurrence: NL)
  Receive Date: 20210622
  Receipt Date: 20210703
  Transmission Date: 20211014
  Serious: Yes (Hospitalization)
  Sender: FDA-Public Use
  Company Number: NL-ABBVIE-21K-114-3945921-00

PATIENT
  Sex: Female

DRUGS (6)
  1. DUODOPA [Suspect]
     Active Substance: CARBIDOPA\LEVODOPA
     Dosage: END: 1.0 ML, CND: 2.5 ML/H
     Route: 050
  2. DUODOPA [Suspect]
     Active Substance: CARBIDOPA\LEVODOPA
     Indication: PARKINSON^S DISEASE
     Dosage: CND: 2.3 ML/H, END: 1.0 ML
     Route: 050
  3. MOVICOLON [Concomitant]
     Active Substance: POLYETHYLENE GLYCOL 3350\POTASSIUM CHLORIDE\SODIUM BICARBONATE\SODIUM CHLORIDE
     Indication: PRODUCT USED FOR UNKNOWN INDICATION
  4. LORAZEPAM. [Concomitant]
     Active Substance: LORAZEPAM
     Indication: PRODUCT USED FOR UNKNOWN INDICATION
  5. DUODOPA [Suspect]
     Active Substance: CARBIDOPA\LEVODOPA
     Dosage: MD: 3.5 ML, CD: 4.6  ML/H, ED: 2.0 ML, NIGHT PUMP MD:0.0ML,  CND: 2.5ML/H, END: 1.0ML
     Route: 050
  6. CLOZAPINE. [Concomitant]
     Active Substance: CLOZAPINE
     Indication: PRODUCT USED FOR UNKNOWN INDICATION

REACTIONS (12)
  - Malnutrition [Unknown]
  - Wheelchair user [Unknown]
  - Urinary tract infection [Not Recovered/Not Resolved]
  - Cognitive disorder [Unknown]
  - General physical health deterioration [Not Recovered/Not Resolved]
  - Nutritional condition abnormal [Not Recovered/Not Resolved]
  - Complication associated with device [Unknown]
  - On and off phenomenon [Unknown]
  - Device dislocation [Recovered/Resolved]
  - Dry mouth [Not Recovered/Not Resolved]
  - Fatigue [Unknown]
  - Enteral nutrition [Unknown]

NARRATIVE: CASE EVENT DATE: 2021
